FAERS Safety Report 4924256-1 (Version None)
Quarter: 2006Q1

REPORT INFORMATION
  Report Type: 
  Country: None (occurrence: None)
  Receive Date: 20060221
  Receipt Date: 20060207
  Transmission Date: 20060701
  Serious: Yes (Other)
  Sender: FDA-Public Use
  Company Number: 2006019233

PATIENT
  Sex: Male
  Weight: 72.5755 kg

DRUGS (8)
  1. LIPITOR [Suspect]
     Indication: BLOOD CHOLESTEROL INCREASED
     Dosage: 10 MG (10 MG, 1 IN 1 D), ORAL
     Route: 048
     Dates: end: 20060101
  2. ACCUPRIL [Suspect]
     Indication: HYPERTENSION
     Dosage: 10 MG (10 MG, 1 IN 1 D), ORAL
     Route: 048
     Dates: start: 19990101
  3. CLONAZEPAM [Suspect]
     Indication: ILL-DEFINED DISORDER
  4. LODINE [Suspect]
     Indication: BACK DISORDER
     Dosage: 10 MG (1 IN 1 D)
  5. ZETIA [Suspect]
     Indication: CARDIAC STRESS TEST ABNORMAL
     Dosage: 10 MG (10 MG, 1 IN 1 D), ORAL
     Route: 048
     Dates: start: 20050101, end: 20060101
  6. NASONEX [Suspect]
     Indication: HYPERSENSITIVITY
  7. ASPIRIN [Concomitant]
  8. DIPENTUM [Concomitant]

REACTIONS (14)
  - ARTERIAL OCCLUSIVE DISEASE [None]
  - BACK DISORDER [None]
  - CARDIAC STRESS TEST ABNORMAL [None]
  - CATHETERISATION CARDIAC ABNORMAL [None]
  - COLITIS ULCERATIVE [None]
  - ERECTILE DYSFUNCTION [None]
  - HYPERSENSITIVITY [None]
  - HYPERTENSION [None]
  - MUSCLE ENZYME INCREASED [None]
  - MUSCULAR WEAKNESS [None]
  - NASOPHARYNGITIS [None]
  - PAIN IN EXTREMITY [None]
  - PHARYNGOLARYNGEAL PAIN [None]
  - RASH [None]
